FAERS Safety Report 24039802 (Version 1)
Quarter: 2024Q3

REPORT INFORMATION
  Report Type: Spontaneous
  Country: US (occurrence: US)
  Receive Date: 20240702
  Receipt Date: 20240702
  Transmission Date: 20241017
  Serious: Yes (Hospitalization)
  Sender: AUROBINDO
  Company Number: US-AUROBINDO-AUR-APL-2024-031626

PATIENT
  Age: 63 Year
  Sex: Male

DRUGS (4)
  1. DAPTOMYCIN [Suspect]
     Active Substance: DAPTOMYCIN
     Indication: Staphylococcal bacteraemia
     Dosage: UNK
     Route: 065
     Dates: start: 2021
  2. VANCOMYCIN [Suspect]
     Active Substance: VANCOMYCIN
     Indication: Staphylococcal bacteraemia
     Dosage: UNK
     Route: 065
     Dates: end: 20210226
  3. DALBAVANCIN [Suspect]
     Active Substance: DALBAVANCIN
     Indication: Staphylococcal bacteraemia
     Dosage: 1500 MILLIGRAM
     Route: 065
     Dates: start: 20210226
  4. DALBAVANCIN [Suspect]
     Active Substance: DALBAVANCIN
     Dosage: 1000 MILLIGRAM
     Route: 065
     Dates: start: 20210315

REACTIONS (1)
  - Drug resistance [Unknown]
